FAERS Safety Report 21571417 (Version 1)
Quarter: 2022Q4

REPORT INFORMATION
  Report Type: Spontaneous
  Country: US (occurrence: None)
  Receive Date: 20221107
  Receipt Date: 20221107
  Transmission Date: 20230113
  Serious: Yes (Hospitalization)
  Sender: FDA-Public Use
  Company Number: None

PATIENT
  Age: 89 Year
  Sex: Female

DRUGS (1)
  1. PIRFENIDONE [Suspect]
     Active Substance: PIRFENIDONE
     Indication: Pulmonary fibrosis
     Dosage: 801MG 3 TIMES A DA ORAO?
     Route: 048
     Dates: start: 202210

REACTIONS (5)
  - Blood pressure increased [None]
  - Blood pressure decreased [None]
  - Affective disorder [None]
  - Personality change [None]
  - Abdominal discomfort [None]

NARRATIVE: CASE EVENT DATE: 20221031
